FAERS Safety Report 4417979-4 (Version None)
Quarter: 2004Q3

REPORT INFORMATION
  Report Type: 
  Country: None (occurrence: None)
  Receive Date: 20040804
  Receipt Date: 20040716
  Transmission Date: 20050211
  Serious: Yes (Hospitalization)
  Sender: FDA-Public Use
  Company Number: A01200403351

PATIENT
  Age: 65 Year
  Sex: Female

DRUGS (4)
  1. PLAQUENIL [Suspect]
     Indication: SYSTEMIC LUPUS ERYTHEMATOSUS
     Dosage: 200 MG QD
     Route: 048
     Dates: start: 20040504, end: 20040617
  2. (RISEDRONATE SODIUM) - UNKNOWN - UNIT DOSE : UNKNOWN [Suspect]
     Dosage: 35 MG/WEEK
     Route: 048
     Dates: start: 20040514, end: 20040617
  3. PREDNISOLONE [Concomitant]
  4. METHOTREXATE [Concomitant]

REACTIONS (3)
  - CONDITION AGGRAVATED [None]
  - DYSPHAGIA [None]
  - OESOPHAGITIS [None]
